FAERS Safety Report 7068750-9 (Version None)
Quarter: 2010Q4

REPORT INFORMATION
  Report Type: 
  Country: None (occurrence: None)
  Receive Date: 20101028
  Receipt Date: 20101022
  Transmission Date: 20110411
  Serious: Yes (Hospitalization)
  Sender: FDA-Public Use
  Company Number: FR-PFIZER INC-2010134289

PATIENT
  Age: 42 Year
  Sex: Female

DRUGS (11)
  1. DALACINE [Suspect]
     Dosage: 300 MG, 2X/DAY
     Route: 048
     Dates: start: 20100729, end: 20100730
  2. DOLIPRANE [Suspect]
     Indication: PAIN
     Dosage: 500 MG, 1X/DAY
     Route: 048
     Dates: start: 20100725, end: 20100801
  3. RIFADIN [Suspect]
     Dosage: 300 MG, 2X/DAY
     Route: 048
     Dates: start: 20100729, end: 20100730
  4. AMOXICILLIN AND CLAVULANATE POTASSIUM [Concomitant]
     Dosage: UNK
     Route: 042
     Dates: start: 20100722, end: 20100725
  5. AMOXICILLIN AND CLAVULANATE POTASSIUM [Concomitant]
     Dosage: UNK
     Route: 048
     Dates: start: 20100726, end: 20100809
  6. LOVENOX [Concomitant]
     Dosage: 4000 IU, 1X/DAY
     Route: 058
     Dates: start: 20100721, end: 20100809
  7. LANTUS [Concomitant]
  8. HUMALOG [Concomitant]
  9. TRIATEC [Concomitant]
  10. TARDYFERON [Concomitant]
  11. LEVOTHYROXINE SODIUM [Concomitant]

REACTIONS (1)
  - HEPATITIS [None]
